FAERS Safety Report 9178928 (Version 1)
Quarter: 2013Q1

REPORT INFORMATION
  Report Type: Report from Study
  Country: US (occurrence: US)
  Receive Date: 20130321
  Receipt Date: 20130321
  Transmission Date: 20140127
  Serious: Yes (Hospitalization, Other)
  Sender: FDA-Public Use
  Company Number: US-ABBOTT-13P-163-1060940-00

PATIENT
  Age: 14 None
  Sex: Female
  Weight: 40.3 kg

DRUGS (3)
  1. HUMIRA [Suspect]
     Indication: CROHN^S DISEASE
     Route: 058
     Dates: start: 201209
  2. HUMIRA [Suspect]
     Route: 058
     Dates: start: 20130117
  3. IMURAN [Concomitant]
     Indication: CROHN^S DISEASE
     Dates: start: 20121009

REACTIONS (4)
  - Ileal stenosis [Recovered/Resolved]
  - Abscess intestinal [Recovered/Resolved]
  - Fibrosis [Recovered/Resolved]
  - Off label use [Unknown]
